FAERS Safety Report 9779646 (Version 3)
Quarter: 2014Q2

REPORT INFORMATION
  Report Type: Spontaneous
  Country: US (occurrence: US)
  Receive Date: 20131223
  Receipt Date: 20140508
  Transmission Date: 20141212
  Serious: Yes (Other)
  Sender: FDA-Public Use
  Company Number: US-PFIZER INC-2013360653

PATIENT
  Sex: Male

DRUGS (2)
  1. TETRACYCLINE HCL [Suspect]
     Indication: MALAISE
     Dosage: UNK
     Dates: start: 1962
  2. TETRACYCLINE HCL [Suspect]
     Indication: TONSILLITIS

REACTIONS (4)
  - Deafness [Unknown]
  - Depression [Unknown]
  - Tooth discolouration [Unknown]
  - Tooth discolouration [Unknown]
